FAERS Safety Report 4323168-4 (Version None)
Quarter: 2004Q1

REPORT INFORMATION
  Report Type: 
  Country: None (occurrence: None)
  Receive Date: 20040322
  Receipt Date: 20040312
  Transmission Date: 20041129
  Serious: Yes (Other)
  Sender: FDA-Public Use
  Company Number: 2004-BP-01962RO (0)

PATIENT
  Age: 46 Year
  Sex: Male

DRUGS (4)
  1. LEUCOVORIN CALCIUM [Suspect]
     Indication: RECTAL CANCER
     Dosage: 75 MG, PO; 75 MG, PO
     Route: 048
     Dates: start: 20030528, end: 20030827
  2. LEUCOVORIN CALCIUM [Suspect]
     Indication: RECTAL CANCER
     Dosage: 75 MG, PO; 75 MG, PO
     Route: 048
     Dates: start: 20030910
  3. UFT [Suspect]
     Indication: RECTAL CANCER
     Dosage: 5 CAPSULES PER DAY, PO; 4 CAPSULES A DAY, PO
     Route: 048
     Dates: start: 20030528, end: 20030827
  4. UFT [Suspect]
     Indication: RECTAL CANCER
     Dosage: 5 CAPSULES PER DAY, PO; 4 CAPSULES A DAY, PO
     Route: 048
     Dates: start: 20030910

REACTIONS (4)
  - ALANINE AMINOTRANSFERASE INCREASED [None]
  - ASPARTATE AMINOTRANSFERASE INCREASED [None]
  - BLOOD BILIRUBIN INCREASED [None]
  - EOSINOPHIL PERCENTAGE INCREASED [None]
